FAERS Safety Report 4901076-5 (Version None)
Quarter: 2006Q1

REPORT INFORMATION
  Report Type: 
  Country: None (occurrence: None)
  Receive Date: 20060113
  Receipt Date: 20051125
  Transmission Date: 20060701
  Serious: No
  Sender: FDA-Public Use
  Company Number: 2005SP004199

PATIENT
  Age: 54 Year
  Sex: Female
  Weight: 73.4827 kg

DRUGS (3)
  1. LUNESTA [Suspect]
     Dosage: 3 MG;QD;ORAL
     Route: 048
     Dates: start: 20051001, end: 20051101
  2. LIPITOR [Concomitant]
  3. TRAMADOL HCL [Concomitant]

REACTIONS (2)
  - GLOSSODYNIA [None]
  - TONGUE DISCOLOURATION [None]
